FAERS Safety Report 6480852-4 (Version None)
Quarter: 2009Q4

REPORT INFORMATION
  Report Type: 
  Country: None (occurrence: None)
  Receive Date: 20091208
  Receipt Date: 20091130
  Transmission Date: 20100525
  Serious: Yes (Hospitalization)
  Sender: FDA-Public Use
  Company Number: US-SANOFI-AVENTIS-2009SA006588

PATIENT
  Age: 61 Year
  Sex: Male

DRUGS (4)
  1. GLIBENCLAMIDE [Suspect]
  2. FUROSEMIDE [Suspect]
  3. HEPARIN SODIUM [Suspect]
  4. ATORVASTATIN CALCIUM [Suspect]

REACTIONS (2)
  - GLOMERULONEPHRITIS MEMBRANOUS [None]
  - RENAL VEIN THROMBOSIS [None]
